FAERS Safety Report 9507001 (Version 1)
Quarter: 2013Q3

REPORT INFORMATION
  Report Type: Spontaneous
  Country: GB (occurrence: None)
  Receive Date: 20130904
  Receipt Date: 20130904
  Transmission Date: 20140515
  Serious: Yes (Other)
  Sender: FDA-Public Use
  Company Number: AUR-APL-2013-07177

PATIENT
  Age: 65 Year
  Sex: Male

DRUGS (3)
  1. RIBAVIRIN [Suspect]
     Indication: HEPATITIS C
     Route: 048
     Dates: start: 20120717
  2. TELAPREVIR [Suspect]
     Indication: HEPATITIS C
     Dates: start: 20120717, end: 20121009
  3. PEGYLATED INTERFERON [Suspect]
     Indication: HEPATITIS C
     Route: 058
     Dates: start: 20120717

REACTIONS (10)
  - Anaemia [None]
  - Decreased appetite [None]
  - Fatigue [None]
  - Dizziness [None]
  - Weight decreased [None]
  - Rash [None]
  - Oral pain [None]
  - Skin irritation [None]
  - Stomatitis [None]
  - Condition aggravated [None]
